FAERS Safety Report 9248879 (Version 2)
Quarter: 2014Q1

REPORT INFORMATION
  Report Type: Spontaneous
  Country: US (occurrence: None)
  Receive Date: 20130305
  Receipt Date: 20140306
  Transmission Date: 20141002
  Serious: Yes (Hospitalization, Other)
  Sender: FDA-Public Use
  Company Number: 163-21880-12053310

PATIENT
  Age: 70 Year
  Sex: Male

DRUGS (14)
  1. REVLIMID (LENALIDOMIDE) (CAPSULES) [Suspect]
     Indication: PLASMA CELL MYELOMA
     Dosage: 25MG, DAILY X 21 DAYS, PO
     Route: 048
     Dates: start: 201104
  2. ALPROZOLAM [Concomitant]
  3. AMILORIDE HCL (AMILORIDE HYDROCHLORIDE) [Concomitant]
  4. DEXAMETHASONE [Concomitant]
  5. FLEXERIL (CYCLOBENZAPRINE HYDROCHLORIDE) [Concomitant]
  6. HYDROCODONE-ACETAMINOPHEN (PROCET/USA/) [Concomitant]
  7. JALYN (DUTAS-T) [Concomitant]
  8. LEVOTHYROXINE SODIUM [Concomitant]
  9. LYRICA (PREGABALIN) [Concomitant]
  10. MIRTAZAPINE [Concomitant]
  11. NITROFURANTOIN MACROCRYSTAL (NITROFURANTOIN) [Concomitant]
  12. OXYCONTIN (OXYCODONE HYDROCHLORIDE) [Concomitant]
  13. PROTONIX [Concomitant]
  14. SULFAMETHOXAZOLE-TRIMETHOPRIM (BACTRIM) [Concomitant]

REACTIONS (2)
  - Pneumonia [None]
  - Cardiac failure congestive [None]
